FAERS Safety Report 18835398 (Version 1)
Quarter: 2021Q1

REPORT INFORMATION
  Report Type: Spontaneous
  Country: US (occurrence: US)
  Receive Date: 20210203
  Receipt Date: 20210203
  Transmission Date: 20210419
  Serious: Yes (Life-Threatening)
  Sender: FDA-Public Use
  Company Number: None

PATIENT
  Age: 45 Year
  Sex: Female
  Weight: 78 kg

DRUGS (14)
  1. STOOL SOFTENER 250 MG [Concomitant]
  2. FERAHEME [Suspect]
     Active Substance: FERUMOXYTOL NON-STOICHIOMETRIC MAGNETITE
     Indication: COLON CANCER METASTATIC
     Dosage: ?          OTHER FREQUENCY:1 TIME DOSE;?
     Route: 041
     Dates: start: 20210110, end: 20210110
  3. LACTOBACILLUS ACIDOPHILUS [Concomitant]
     Active Substance: LACTOBACILLUS ACIDOPHILUS
  4. LOPERAMIDE 2 MG [Concomitant]
     Active Substance: LOPERAMIDE
  5. OXYCODONE 5 MG [Concomitant]
     Active Substance: OXYCODONE
  6. MIRALAX [Concomitant]
     Active Substance: POLYETHYLENE GLYCOL 3350
  7. DICLOFENAC 75 MG EC TABLET [Concomitant]
  8. NORCO 5?325 MG [Concomitant]
  9. GABAPENTIN 300 MG CAPSULE [Concomitant]
     Active Substance: GABAPENTIN
  10. LIDOCAINE?PRILOCAINE 2.5?2.5% CREAM [Concomitant]
  11. MULTIVITAMIN [Concomitant]
     Active Substance: VITAMINS
  12. AMLODIPINE [Concomitant]
     Active Substance: AMLODIPINE BESYLATE
  13. ONDANSETRON. [Concomitant]
     Active Substance: ONDANSETRON
  14. PROCHLORPERAZINE 10 MG [Concomitant]
     Active Substance: PROCHLORPERAZINE

REACTIONS (11)
  - Flushing [None]
  - Hyperhidrosis [None]
  - Infusion related reaction [None]
  - Skin tightness [None]
  - Hypotension [None]
  - Unresponsive to stimuli [None]
  - Erythema [None]
  - Cardio-respiratory arrest [None]
  - Chest discomfort [None]
  - Nystagmus [None]
  - Tremor [None]

NARRATIVE: CASE EVENT DATE: 20210110
